FAERS Safety Report 5995318-5 (Version None)
Quarter: 2008Q4

REPORT INFORMATION
  Report Type: 
  Country: None (occurrence: None)
  Receive Date: 20081212
  Receipt Date: 20080925
  Transmission Date: 20090506
  Serious: No
  Sender: FDA-Public Use
  Company Number: US-ABBOTT-08P-163-0478348-00

PATIENT
  Sex: Female
  Weight: 49.94 kg

DRUGS (1)
  1. HUMIRA [Suspect]
     Indication: PSORIASIS
     Dates: start: 20080515

REACTIONS (5)
  - DRUG INEFFECTIVE [None]
  - PSORIASIS [None]
  - RASH [None]
  - SKIN EXFOLIATION [None]
  - SKIN IRRITATION [None]
